FAERS Safety Report 17977969 (Version 5)
Quarter: 2022Q1

REPORT INFORMATION
  Report Type: Report from Study
  Country: CO (occurrence: CO)
  Receive Date: 20200703
  Receipt Date: 20220104
  Transmission Date: 20220423
  Serious: Yes (Hospitalization, Other)
  Sender: FDA-Public Use
  Company Number: PHHY2016CO089980

PATIENT
  Age: 55 Year
  Sex: Female
  Weight: 50 kg

DRUGS (8)
  1. SANDOSTATIN LAR DEPOT [Suspect]
     Active Substance: OCTREOTIDE ACETATE
     Indication: Acromegaly
     Dosage: 60 MG, QMO
     Route: 030
     Dates: start: 200704
  2. SANDOSTATIN LAR DEPOT [Suspect]
     Active Substance: OCTREOTIDE ACETATE
     Dosage: 60 MG, QMO (2 AMPOULES MONTHLY)
     Route: 030
     Dates: start: 20070628
  3. SANDOSTATIN LAR DEPOT [Suspect]
     Active Substance: OCTREOTIDE ACETATE
     Dosage: 60 MG, QMO (2 AMPOULES MONTHLY)
     Route: 030
     Dates: start: 2009
  4. SANDOSTATIN LAR DEPOT [Suspect]
     Active Substance: OCTREOTIDE ACETATE
     Dosage: 60 MG Q4W (EVERY 4 WEEKS)
     Route: 030
  5. AMLODIPINE [Suspect]
     Active Substance: AMLODIPINE BESYLATE
     Indication: Hypertension
     Dosage: 5 MG, UNK
     Route: 065
  6. DESMOPRESSIN [Concomitant]
     Active Substance: DESMOPRESSIN
     Indication: Product used for unknown indication
     Dosage: UNK
     Route: 065
  7. MINIRIN [Concomitant]
     Active Substance: DESMOPRESSIN ACETATE
     Indication: Diabetes insipidus
     Dosage: 240 MG, UNK
     Route: 048
  8. FLUOXETINE [Concomitant]
     Active Substance: FLUOXETINE HYDROCHLORIDE
     Indication: Anxiety
     Dosage: UNK UNK, QD
     Route: 048

REACTIONS (23)
  - Infarction [Unknown]
  - Cervix disorder [Unknown]
  - Onychomadesis [Unknown]
  - Onychomycosis [Unknown]
  - Aphonia [Unknown]
  - Sleep disorder [Unknown]
  - Hypersensitivity [Unknown]
  - Cough [Unknown]
  - Malaise [Unknown]
  - Influenza [Unknown]
  - Blood pressure increased [Unknown]
  - Concomitant disease aggravated [Unknown]
  - Hypertension [Unknown]
  - Vision blurred [Unknown]
  - Goitre [Unknown]
  - Hyperglycaemia [Unknown]
  - Headache [Not Recovered/Not Resolved]
  - Blood cholesterol increased [Unknown]
  - Depression [Unknown]
  - Depressed mood [Unknown]
  - Drug intolerance [Unknown]
  - Incorrect dose administered [Unknown]
  - Product dose omission issue [Unknown]

NARRATIVE: CASE EVENT DATE: 20170520
